FAERS Safety Report 11465826 (Version 1)
Quarter: 2015Q3

REPORT INFORMATION
  Report Type: Spontaneous
  Country: DE (occurrence: DE)
  Receive Date: 20150907
  Receipt Date: 20150907
  Transmission Date: 20151125
  Serious: Yes (Other)
  Sender: FDA-Public Use
  Company Number: DE-AMGEN-DEUSP2015090488

PATIENT
  Sex: Female

DRUGS (1)
  1. PROLIA [Suspect]
     Active Substance: DENOSUMAB
     Indication: PRODUCT USED FOR UNKNOWN INDICATION
     Dosage: UNK
     Route: 065
     Dates: start: 201109

REACTIONS (4)
  - Gingival disorder [Unknown]
  - Breast cancer [Unknown]
  - Gingival swelling [Unknown]
  - Oral discharge [Unknown]

NARRATIVE: CASE EVENT DATE: 201508
